FAERS Safety Report 12436515 (Version 1)
Quarter: 2016Q2

REPORT INFORMATION
  Report Type: Spontaneous
  Country: NL (occurrence: NL)
  Receive Date: 20160606
  Receipt Date: 20160606
  Transmission Date: 20160815
  Serious: Yes (Life-Threatening, Hospitalization, Other)
  Sender: FDA-Public Use
  Company Number: NL-BRISTOL-MYERS SQUIBB COMPANY-BMS-2016-042232

PATIENT
  Age: 73 Year
  Sex: Female
  Weight: 56 kg

DRUGS (2)
  1. XYLOCAINE [Interacting]
     Active Substance: LIDOCAINE HYDROCHLORIDE
     Indication: LOCAL ANAESTHESIA
     Dosage: 1 KEER PER DAG 1 STUK(S), EXTRA INFO: LOKALE ANESTHESIE
     Route: 003
     Dates: start: 20160524
  2. KENACORT [Suspect]
     Active Substance: TRIAMCINOLONE
     Indication: LOCAL ANAESTHESIA
     Dosage: 1 KEER PER DAG 1 STUK(S)
     Route: 003
     Dates: start: 20160524

REACTIONS (5)
  - Generalised erythema [Recovering/Resolving]
  - Drug interaction [Unknown]
  - Anaphylactic reaction [Recovering/Resolving]
  - Off label use [Unknown]
  - Urticaria [None]

NARRATIVE: CASE EVENT DATE: 20160524
